FAERS Safety Report 4843042-4 (Version None)
Quarter: 2005Q4

REPORT INFORMATION
  Report Type: 
  Country: None (occurrence: None)
  Receive Date: 20051130
  Receipt Date: 20051116
  Transmission Date: 20060501
  Serious: Yes (Death)
  Sender: FDA-Public Use
  Company Number: 12906

PATIENT
  Age: 74 Year
  Sex: Female

DRUGS (1)
  1. METHOTREXATE [Suspect]
     Indication: RHEUMATOID ARTHRITIS
     Dosage: 10 MG DAILY PO
     Route: 048

REACTIONS (7)
  - ACCIDENTAL OVERDOSE [None]
  - DRUG HYPERSENSITIVITY [None]
  - DRUG TOXICITY [None]
  - INAPPROPRIATE SCHEDULE OF DRUG ADMINISTRATION [None]
  - PANCYTOPENIA [None]
  - PNEUMONIA [None]
  - RASH [None]
